FAERS Safety Report 6524925-6 (Version None)
Quarter: 2010Q1

REPORT INFORMATION
  Report Type: 
  Country: None (occurrence: None)
  Receive Date: 20100104
  Receipt Date: 20091222
  Transmission Date: 20100710
  Serious: Yes (Hospitalization)
  Sender: FDA-Public Use
  Company Number: GB-PFIZER INC-2009313418

PATIENT
  Age: 81 Year
  Sex: Male

DRUGS (4)
  1. SOMATROPIN [Suspect]
     Indication: HYPOPITUITARISM
     Dosage: 0.2 MG, 1X/DAY
  2. LISINOPRIL [Concomitant]
     Dosage: 30 MG, UNIT DOSE
     Dates: start: 20060101
  3. DOXAZOSIN [Concomitant]
     Dosage: 2 MG, 1X/DAY
     Dates: start: 20020101
  4. GLICLAZIDE [Concomitant]
     Dosage: 40 MG, UNIT DOSE

REACTIONS (2)
  - CONDITION AGGRAVATED [None]
  - PITUITARY TUMOUR [None]
